FAERS Safety Report 7481999-6 (Version None)
Quarter: 2011Q2

REPORT INFORMATION
  Report Type: 
  Country: None (occurrence: None)
  Receive Date: 20110516
  Receipt Date: 20110510
  Transmission Date: 20111010
  Serious: Yes (Hospitalization)
  Sender: FDA-Public Use
  Company Number: DE-GILEAD-2011-0039494

PATIENT
  Sex: Male

DRUGS (3)
  1. ACTRAPID [Concomitant]
     Indication: DIABETES MELLITUS
     Route: 058
  2. RANEXA [Suspect]
     Indication: CORONARY ARTERY DISEASE
     Route: 048
     Dates: start: 20100111, end: 20110510
  3. INSULIN PROTAPHAN HM (GE) [Concomitant]
     Indication: DIABETES MELLITUS
     Route: 058

REACTIONS (1)
  - HYPOGLYCAEMIA [None]
